FAERS Safety Report 15689857 (Version 1)
Quarter: 2018Q4

REPORT INFORMATION
  Report Type: Spontaneous
  Country: US (occurrence: US)
  Receive Date: 20181205
  Receipt Date: 20181205
  Transmission Date: 20190205
  Serious: No
  Sender: FDA-Public Use
  Company Number: None

PATIENT
  Age: 11 Year
  Sex: Male

DRUGS (3)
  1. NORDIC NATURALS [Concomitant]
  2. METHYLPHENIDATE 27MG ER OSM TABLET [Suspect]
     Active Substance: METHYLPHENIDATE
     Indication: ATTENTION DEFICIT/HYPERACTIVITY DISORDER
     Dosage: ?          QUANTITY:1 TABLET(S);?
     Route: 048
     Dates: start: 20181126, end: 20181204
  3. ULTIMATE OMEGA JR [Concomitant]

REACTIONS (4)
  - Disturbance in attention [None]
  - Drug ineffective [None]
  - Product substitution issue [None]
  - Abnormal behaviour [None]

NARRATIVE: CASE EVENT DATE: 20181204
